FAERS Safety Report 9864346 (Version 2)
Quarter: 2014Q1

REPORT INFORMATION
  Report Type: Spontaneous
  Country: US (occurrence: US)
  Receive Date: 20140203
  Receipt Date: 20140307
  Transmission Date: 20141002
  Serious: No
  Sender: FDA-Public Use
  Company Number: US-AMGEN-USASP2014000993

PATIENT
  Age: 63 Year
  Sex: Female
  Weight: 61.22 kg

DRUGS (7)
  1. ENBREL [Suspect]
     Indication: RHEUMATOID ARTHRITIS
     Dosage: 25 MG, QWK
     Route: 058
     Dates: start: 200501
  2. METHOTREXATE [Concomitant]
     Indication: RHEUMATOID ARTHRITIS
     Dosage: 2.5 MILLIGRAMS,  5 TABLETS ONCE A WEEK
     Route: 048
     Dates: start: 2003
  3. DOXYCYCLINE [Concomitant]
     Indication: RHEUMATOID ARTHRITIS
     Dosage: 100 MG, QD
     Route: 048
     Dates: start: 2007
  4. FOLIC ACID [Concomitant]
     Indication: RHEUMATOID ARTHRITIS
     Dosage: 2 MG, QD
     Route: 048
     Dates: start: 2003
  5. PLAQUENIL                          /00072602/ [Concomitant]
     Indication: RHEUMATOID ARTHRITIS
     Dosage: 200 MG, BID
     Route: 048
     Dates: start: 2004
  6. MOBIC [Concomitant]
     Indication: RHEUMATOID ARTHRITIS
     Dosage: 7.5 MG, QD
     Route: 048
     Dates: start: 2007
  7. MOBIC [Concomitant]
     Indication: OSTEOARTHRITIS

REACTIONS (9)
  - Ear discomfort [Not Recovered/Not Resolved]
  - Hearing impaired [Not Recovered/Not Resolved]
  - Arthralgia [Recovering/Resolving]
  - Grip strength decreased [Recovered/Resolved]
  - Local swelling [Recovered/Resolved]
  - Hypertension [Unknown]
  - Osteoporosis [Unknown]
  - Hyperlipidaemia [Unknown]
  - Sinusitis [Not Recovered/Not Resolved]
